FAERS Safety Report 5421233-1 (Version None)
Quarter: 2007Q3

REPORT INFORMATION
  Report Type: 
  Country: None (occurrence: None)
  Receive Date: 20070719
  Receipt Date: 20060828
  Transmission Date: 20080115
  Serious: Yes (Other)
  Sender: FDA-Public Use
  Company Number: OMPQ-PR-0608S-1309

PATIENT
  Age: 58 Year
  Sex: Female

DRUGS (1)
  1. OMNIPAQUE 140 [Suspect]
     Indication: PANCREATIC MASS
     Dosage: 125 ML, SINGLE DOSE, I.V.
     Route: 042
     Dates: start: 20060821, end: 20060821

REACTIONS (1)
  - ANAPHYLACTOID REACTION [None]
